FAERS Safety Report 22072221 (Version 1)
Quarter: 2023Q1

REPORT INFORMATION
  Report Type: Spontaneous
  Country: US (occurrence: US)
  Receive Date: 20230308
  Receipt Date: 20230308
  Transmission Date: 20230418
  Serious: No
  Sender: FDA-Public Use
  Company Number: US-drreddys-SPO/USA/23/0159905

PATIENT
  Age: 16 Year
  Sex: Male
  Weight: 84.8 kg

DRUGS (4)
  1. ZENATANE [Suspect]
     Active Substance: ISOTRETINOIN
     Indication: Acne
     Dosage: RMA ISSUE DATE: 28 JUNE 2022 04:04:27 PM; 29 AUGUST 2022 03:45:33 PM
     Route: 048
     Dates: start: 20220628, end: 20221018
  2. ISOTRETINOIN [Suspect]
     Active Substance: ISOTRETINOIN
     Indication: Acne
     Dosage: RMA ISSUE DATE: 02 AUGUST 2022 10:56:50 AM;
     Route: 048
     Dates: start: 20220802, end: 2022
  3. ISOTRETINOIN [Suspect]
     Active Substance: ISOTRETINOIN
     Dosage: RMA ISSUE DATE: 1 DECEMBER 2022 12:34:44 PM
     Route: 048
     Dates: start: 20221201, end: 20221209
  4. ISOTRETINOIN [Suspect]
     Active Substance: ISOTRETINOIN
     Indication: Acne
     Dosage: RMA ISSUE DATE: 19 OCTOBER 2022 10:30:32 AM
     Route: 048
     Dates: start: 20221019, end: 2022

REACTIONS (4)
  - Arthralgia [Unknown]
  - Myalgia [Unknown]
  - Decreased appetite [Unknown]
  - Fatigue [Unknown]

NARRATIVE: CASE EVENT DATE: 20220101
